FAERS Safety Report 5023108-9 (Version None)
Quarter: 2006Q2

REPORT INFORMATION
  Report Type: 
  Country: None (occurrence: None)
  Receive Date: 20060605
  Receipt Date: 20060518
  Transmission Date: 20061013
  Serious: Yes (Hospitalization)
  Sender: FDA-Public Use
  Company Number: S06-FRA-02174-01

PATIENT
  Age: 79 Year
  Sex: Male

DRUGS (4)
  1. MEMANTINE HCL [Suspect]
     Indication: DEMENTIA ALZHEIMER'S TYPE
     Dosage: 10 MG BID PO
     Route: 048
     Dates: end: 20060309
  2. MEMANTINE HCL [Suspect]
     Indication: DEMENTIA ALZHEIMER'S TYPE
     Dosage: 10 MG QD PO
     Route: 048
     Dates: start: 20060310
  3. EFFEXOR [Suspect]
     Dosage: 75 MG QD PO
     Route: 048
     Dates: end: 20060311
  4. REMINYL (GALANTAMIN EHYDROBROMIDE) [Concomitant]

REACTIONS (9)
  - ABNORMAL BEHAVIOUR [None]
  - CONDITION AGGRAVATED [None]
  - DISORIENTATION [None]
  - FALL [None]
  - GAIT DISTURBANCE [None]
  - HYDROCEPHALUS [None]
  - ILL-DEFINED DISORDER [None]
  - INCONTINENCE [None]
  - MEMORY IMPAIRMENT [None]
